FAERS Safety Report 22756110 (Version 3)
Quarter: 2024Q1

REPORT INFORMATION
  Report Type: Spontaneous
  Country: IT (occurrence: IT)
  Receive Date: 20230727
  Receipt Date: 20240227
  Transmission Date: 20240409
  Serious: Yes (Other)
  Sender: FDA-Public Use
  Company Number: IT-OTSUKA-2023_010330

PATIENT
  Sex: Female

DRUGS (5)
  1. ABILIFY MAINTENA [Suspect]
     Active Substance: ARIPIPRAZOLE
     Indication: Schizophrenia
     Dosage: 400 MG, QM
     Route: 065
     Dates: start: 202112
  2. DESCOVY [Concomitant]
     Active Substance: EMTRICITABINE\TENOFOVIR ALAFENAMIDE FUMARATE
     Indication: HIV infection
     Dosage: 1 DF, QD (200/25 MG 1 PER DAY)
     Route: 065
  3. LEUCOVORIN CALCIUM [Concomitant]
     Active Substance: LEUCOVORIN CALCIUM
     Indication: Product used for unknown indication
     Dosage: 15 MG
     Route: 065
  4. CHOLECALCIFEROL [Concomitant]
     Active Substance: CHOLECALCIFEROL
     Indication: Product used for unknown indication
     Dosage: 25000 UI (EVERY 15 DAYS)
     Route: 065
  5. ISENTRESS [Concomitant]
     Active Substance: RALTEGRAVIR POTASSIUM
     Indication: HIV infection
     Dosage: 600 MG, BID
     Route: 065

REACTIONS (2)
  - Haemoglobinaemia [Recovering/Resolving]
  - Maternal exposure during pregnancy [Unknown]
